FAERS Safety Report 4376116-5 (Version None)
Quarter: 2004Q2

REPORT INFORMATION
  Report Type: 
  Country: None (occurrence: None)
  Receive Date: 20040609
  Receipt Date: 20040609
  Transmission Date: 20050107
  Serious: Yes (Life-Threatening, Hospitalization, Other)
  Sender: FDA-Public Use
  Company Number: None

PATIENT
  Age: 71 Year
  Sex: Male
  Weight: 64 kg

DRUGS (16)
  1. ENOXAPARIN SODIUM [Suspect]
     Indication: ANTICOAGULANT THERAPY
     Dosage: 70 MG SQ Q 12 H
     Route: 058
  2. ENOXAPARIN SODIUM [Suspect]
     Indication: MYOCARDIAL INFARCTION
     Dosage: 70 MG SQ Q 12 H
     Route: 058
  3. ASPIRIN [Suspect]
     Indication: ANTIPLATELET THERAPY
     Dosage: 325 MG PO QD
     Route: 048
  4. ASPIRIN [Suspect]
     Indication: MYOCARDIAL INFARCTION
     Dosage: 325 MG PO QD
     Route: 048
  5. LASIX [Concomitant]
  6. KCL TAB [Concomitant]
  7. CARAFATE [Concomitant]
  8. TOPROL-XL [Concomitant]
  9. ZYPREXA [Concomitant]
  10. OS-CAL [Concomitant]
  11. DILANTIN [Concomitant]
  12. ZOLOFT [Concomitant]
  13. NEXIUM [Concomitant]
  14. ALTACE [Concomitant]
  15. LANTUS [Concomitant]
  16. DURICEF [Concomitant]

REACTIONS (2)
  - OESOPHAGEAL ULCER [None]
  - UPPER GASTROINTESTINAL HAEMORRHAGE [None]
